FAERS Safety Report 4521007-X (Version None)
Quarter: 2004Q4

REPORT INFORMATION
  Report Type: 
  Country: None (occurrence: None)
  Receive Date: 20041206
  Receipt Date: 20041129
  Transmission Date: 20050328
  Serious: Yes (Death)
  Sender: FDA-Public Use
  Company Number: 2004-122828-NL

PATIENT
  Age: 99 Year
  Sex: Female

DRUGS (15)
  1. MIRTAZAPINE [Suspect]
     Indication: DEPRESSION
     Dosage: 30 MG QD ORAL
     Route: 048
     Dates: start: 20041022
  2. CELECOXIB [Suspect]
     Dosage: 200 MG BID ORAL
     Route: 048
     Dates: start: 20020101, end: 20041114
  3. ACETYLSALICYLIC ACID [Suspect]
     Indication: PAIN
     Dosage: 75 MG QD ORAL
     Route: 048
     Dates: start: 20000101, end: 20041114
  4. PARACETAMOL [Concomitant]
  5. ISOSORBIDE MONONITRATE [Concomitant]
  6. MOVICOL [Concomitant]
  7. SULPIRIDE [Concomitant]
  8. CODEINE PHOSPHATE [Concomitant]
  9. DIDRONEL PMO ^PROCTER + GAMBLE^ [Concomitant]
  10. GTN [Concomitant]
  11. LACTULOSE [Concomitant]
  12. NEFOPAM HYDROCHLORIDE [Concomitant]
  13. SENNA [Concomitant]
  14. TRANSVASIN [Concomitant]
  15. DOMPERIDONE [Concomitant]

REACTIONS (5)
  - HAEMATEMESIS [None]
  - HAEMOGLOBIN DECREASED [None]
  - PLATELET COUNT INCREASED [None]
  - RED BLOOD CELL COUNT DECREASED [None]
  - WHITE BLOOD CELL COUNT INCREASED [None]
